FAERS Safety Report 8160270-3 (Version None)
Quarter: 2012Q1

REPORT INFORMATION
  Report Type: 
  Country: None (occurrence: None)
  Receive Date: 20120223
  Receipt Date: 20120223
  Transmission Date: 20120608
  Serious: Yes (Hospitalization)
  Sender: FDA-Public Use
  Company Number: None

PATIENT
  Age: 23 Year
  Sex: Female
  Weight: 85 kg

DRUGS (1)
  1. MIFEPRISTONE (MIFEPREX) [Suspect]
     Indication: ABORTION
     Dates: start: 20111226, end: 20111226

REACTIONS (4)
  - INTERNATIONAL NORMALISED RATIO ABNORMAL [None]
  - ANAEMIA [None]
  - VAGINAL HAEMORRHAGE [None]
  - ABDOMINAL PAIN [None]
